FAERS Safety Report 6301562-X (Version None)
Quarter: 2009Q3

REPORT INFORMATION
  Report Type: 
  Country: None (occurrence: None)
  Receive Date: 20090805
  Receipt Date: 20090731
  Transmission Date: 20100115
  Serious: Yes (Hospitalization)
  Sender: FDA-Public Use
  Company Number: 2009SP008875

PATIENT
  Age: 22 Year
  Sex: Male

DRUGS (5)
  1. BETAMETHASONE [Suspect]
     Indication: DYSPNOEA
     Dosage: 2 MG;BID;PO
     Route: 048
     Dates: start: 20090219, end: 20090219
  2. AIROMIR (SALBUTAMOL SULFATE) [Suspect]
     Indication: ASTHMA
     Dosage: 1 DF;TID;INH
     Route: 055
     Dates: end: 20090219
  3. SYMBICORT [Suspect]
     Indication: ASTHMA
     Dosage: 2 DF;TID;INH
     Route: 055
  4. AMOXICILLIN [Suspect]
     Indication: DYSPNOEA
     Dosage: 1 DF;QD;PO
     Route: 048
     Dates: start: 20090219, end: 20090220
  5. PHOLCODINE TAB [Suspect]
     Indication: DYSPNOEA
     Dosage: 1 DF;TID;PO
     Route: 048
     Dates: start: 20090219, end: 20090220

REACTIONS (11)
  - ABASIA [None]
  - BLOOD LACTIC ACID INCREASED [None]
  - DYSPNOEA [None]
  - FATIGUE [None]
  - GLYCOSURIA [None]
  - HYPERGLYCAEMIA [None]
  - HYPOKALAEMIA [None]
  - HYPOPHOSPHATAEMIA [None]
  - MYALGIA [None]
  - PAIN IN EXTREMITY [None]
  - VOMITING [None]
